FAERS Safety Report 9753206 (Version 1)
Quarter: 2013Q4

REPORT INFORMATION
  Report Type: Spontaneous
  Country: US (occurrence: US)
  Receive Date: 20131213
  Receipt Date: 20131213
  Transmission Date: 20140711
  Serious: No
  Sender: FDA-Public Use
  Company Number: US-GILEAD-2010-0027339

PATIENT
  Sex: Female
  Weight: 58.97 kg

DRUGS (18)
  1. LETAIRIS [Suspect]
     Indication: PULMONARY ARTERIAL HYPERTENSION
     Route: 048
     Dates: start: 20090122
  2. NIFEDIPINE [Concomitant]
  3. TRICOR [Concomitant]
  4. LASIX [Concomitant]
  5. HYDROCODONE W/APAP [Concomitant]
  6. LIDODERM PATCH [Concomitant]
  7. ALLOPURINOL [Concomitant]
  8. LORAZEPAM [Concomitant]
  9. AMBIEN [Concomitant]
  10. PREMARIN [Concomitant]
  11. LEVOTHYROXINE [Concomitant]
  12. TRAVATAN [Concomitant]
  13. OMEPRAZOLE [Concomitant]
  14. TYLENOL [Concomitant]
  15. CALTRATE W/D [Concomitant]
  16. METAMUCIL [Concomitant]
  17. POT CL [Concomitant]
  18. CENTRUM [Concomitant]

REACTIONS (1)
  - Growth of eyelashes [Unknown]
